FAERS Safety Report 9828362 (Version 2)
Quarter: 2014Q1

REPORT INFORMATION
  Report Type: Spontaneous
  Country: AU (occurrence: AU)
  Receive Date: 20140117
  Receipt Date: 20140117
  Transmission Date: 20141002
  Serious: Yes (Hospitalization, Other)
  Sender: FDA-Public Use
  Company Number: AU-UCBSA-107474

PATIENT
  Age: 64 Year
  Sex: Female
  Weight: 68 kg

DRUGS (1)
  1. LACOSAMIDE [Suspect]
     Route: 048
     Dates: start: 20130101, end: 20130814

REACTIONS (1)
  - Atrioventricular block [Recovered/Resolved with Sequelae]
